FAERS Safety Report 21920021 (Version 2)
Quarter: 2023Q1

REPORT INFORMATION
  Report Type: Spontaneous
  Country: JP (occurrence: JP)
  Receive Date: 20230127
  Receipt Date: 20230203
  Transmission Date: 20230418
  Serious: Yes (Hospitalization, Other)
  Sender: FDA-Public Use
  Company Number: JP-ONO-2023JP001910

PATIENT

DRUGS (2)
  1. BRAFTOVI [Suspect]
     Active Substance: ENCORAFENIB
     Indication: Colon cancer
     Dosage: UNK
     Route: 048
  2. MEKTOVI [Suspect]
     Active Substance: BINIMETINIB
     Indication: Colon cancer
     Dosage: UNK
     Route: 048

REACTIONS (2)
  - Acute kidney injury [Unknown]
  - Diarrhoea [Unknown]
